FAERS Safety Report 25571727 (Version 2)
Quarter: 2025Q3

REPORT INFORMATION
  Report Type: Spontaneous
  Country: EU (occurrence: EU)
  Receive Date: 20250717
  Receipt Date: 20250818
  Transmission Date: 20251021
  Serious: Yes (Hospitalization, Other)
  Sender: ABBVIE
  Company Number: None

PATIENT
  Age: 21 Year
  Sex: Male
  Weight: 52 kg

DRUGS (2)
  1. ASACOL [Suspect]
     Active Substance: MESALAMINE
     Indication: Colitis ulcerative
     Dosage: DOSE: 800MG X 3?DOSE FORM: GASTRO-RESISTANT TABLET?FREQENCY: 8 HOURS
     Route: 048
     Dates: start: 20250530, end: 20250625
  2. OXCARBAZEPINE [Concomitant]
     Active Substance: OXCARBAZEPINE
     Indication: Epilepsy
     Route: 048

REACTIONS (4)
  - Pancreatitis acute [Recovering/Resolving]
  - Oedematous pancreatitis [Recovering/Resolving]
  - Lipase increased [Unknown]
  - Lipase increased [Recovered/Resolved]

NARRATIVE: CASE EVENT DATE: 20250625
